FAERS Safety Report 11768175 (Version 1)
Quarter: 2015Q4

REPORT INFORMATION
  Report Type: Spontaneous
  Country: US (occurrence: US)
  Receive Date: 20151123
  Receipt Date: 20151123
  Transmission Date: 20160304
  Serious: No
  Sender: FDA-Public Use
  Company Number: US-JNJFOC-20151018413

PATIENT
  Age: 83 Year
  Sex: Male
  Weight: 65.77 kg

DRUGS (3)
  1. ZYRTEC 10MG IR TABLET [Suspect]
     Active Substance: CETIRIZINE HYDROCHLORIDE
     Indication: SINUS OPERATION
     Dosage: 1 TABLET, DAILY
     Route: 048
     Dates: end: 20151021
  2. ASPIRIN. [Concomitant]
     Active Substance: ASPIRIN
     Indication: PRODUCT USED FOR UNKNOWN INDICATION
     Dosage: 1/4 TABLET DAILY
     Route: 065
  3. ZYRTEC 10MG IR TABLET [Suspect]
     Active Substance: CETIRIZINE HYDROCHLORIDE
     Route: 048

REACTIONS (4)
  - Chest pain [Recovering/Resolving]
  - Wrong patient received medication [Recovering/Resolving]
  - Product use issue [Recovering/Resolving]
  - Therapeutic response decreased [Unknown]
